FAERS Safety Report 12118073 (Version 2)
Quarter: 2016Q2

REPORT INFORMATION
  Report Type: Spontaneous
  Country: CA (occurrence: CA)
  Receive Date: 20160226
  Receipt Date: 20160429
  Transmission Date: 20160815
  Serious: Yes (Hospitalization)
  Sender: FDA-Public Use
  Company Number: CA-ROCHE-1569240

PATIENT
  Age: 56 Year
  Sex: Female

DRUGS (13)
  1. PEGASYS [Suspect]
     Active Substance: PEGINTERFERON ALFA-2A
     Indication: CHRONIC HEPATITIS C
     Dosage: THERAPY DURATION 28 DAYS
     Route: 058
  2. PEGETRON [Suspect]
     Active Substance: PEGINTERFERON ALFA-2B\RIBAVIRIN
     Route: 048
  3. SOVALDI [Suspect]
     Active Substance: SOFOSBUVIR
     Indication: HEPATITIS C
     Route: 048
  4. RIBAVIRIN. [Suspect]
     Active Substance: RIBAVIRIN
     Indication: HEPATITIS C
     Dosage: THERAPY DURATION: 28 DAYS
     Route: 065
  5. IBAVYR [Suspect]
     Active Substance: RIBAVIRIN
     Indication: HEPATITIS C
     Dosage: THERAPY DURATION: 40 DAYS
     Route: 048
  6. PEGASYS [Suspect]
     Active Substance: PEGINTERFERON ALFA-2A
     Dosage: THERAPY DURATION 28 DAYS
     Route: 065
  7. GALEXOS [Suspect]
     Active Substance: SIMEPREVIR
     Indication: CHRONIC HEPATITIS C
     Dosage: THERAPY DURATION: 18 DAYS
     Route: 048
  8. METFORMIN [Concomitant]
     Active Substance: METFORMIN HYDROCHLORIDE
  9. PEGASYS [Suspect]
     Active Substance: PEGINTERFERON ALFA-2A
     Route: 048
  10. PEGETRON [Suspect]
     Active Substance: PEGINTERFERON ALFA-2B\RIBAVIRIN
     Indication: CHRONIC HEPATITIS C
     Route: 048
  11. PEGETRON [Suspect]
     Active Substance: PEGINTERFERON ALFA-2B\RIBAVIRIN
     Route: 048
  12. NADOLOL. [Concomitant]
     Active Substance: NADOLOL
  13. BISACODYL. [Concomitant]
     Active Substance: BISACODYL

REACTIONS (17)
  - Blood bilirubin abnormal [Unknown]
  - Blood albumin decreased [Unknown]
  - Chills [Unknown]
  - Hepatic function abnormal [Unknown]
  - Hepatic failure [Unknown]
  - Pyrexia [Unknown]
  - Blood test abnormal [Unknown]
  - Off label use [Unknown]
  - Urinary tract infection [Unknown]
  - Nausea [Unknown]
  - Hepatorenal syndrome [Unknown]
  - Portal vein thrombosis [Unknown]
  - Diarrhoea [Unknown]
  - Abdominal pain [Unknown]
  - Renal failure [Unknown]
  - International normalised ratio increased [Unknown]
  - Jaundice [Unknown]
